FAERS Safety Report 4308259-6 (Version None)
Quarter: 2004Q1

REPORT INFORMATION
  Report Type: 
  Country: None (occurrence: None)
  Receive Date: 20040301
  Receipt Date: 20031003
  Transmission Date: 20041129
  Serious: No
  Sender: FDA-Public Use
  Company Number: US-BRISTOL-MYERS SQUIBB COMPANY-12401212

PATIENT
  Age: 58 Year
  Sex: Male
  Weight: 104 kg

DRUGS (4)
  1. GLUCOPHAGE [Suspect]
     Indication: DIABETES MELLITUS
     Dosage: THERAPY FROM:  ^OVER A YEAR AGO^
     Route: 048
  2. MOTRIN [Concomitant]
  3. COLCHICINE [Concomitant]
  4. POTASSIUM SUPPLEMENT [Concomitant]

REACTIONS (2)
  - DYSPEPSIA [None]
  - IRRITABLE BOWEL SYNDROME [None]
